FAERS Safety Report 6639684-6 (Version None)
Quarter: 2010Q1

REPORT INFORMATION
  Report Type: 
  Country: None (occurrence: None)
  Receive Date: 20100318
  Receipt Date: 20100227
  Transmission Date: 20100710
  Serious: Yes (Disabling)
  Sender: FDA-Public Use
  Company Number: CA-BAYER-200110436BCA

PATIENT
  Age: 80 Year
  Sex: Male
  Weight: 96 kg

DRUGS (2)
  1. RAF KINASE INHIBITOR [Suspect]
     Indication: MYELODYSPLASTIC SYNDROME
     Dosage: TOTAL DAILY DOSE: 200 MG  UNIT DOSE: 50 MG
     Route: 048
     Dates: start: 20011018, end: 20011212
  2. MULTI-VITAMIN [Concomitant]
     Indication: NUTRITIONAL SUPPORT
     Route: 065
     Dates: start: 19860101

REACTIONS (2)
  - BRAIN STEM STROKE [None]
  - DIPLOPIA [None]
